FAERS Safety Report 14742432 (Version 4)
Quarter: 2018Q4

REPORT INFORMATION
  Report Type: Report from Study
  Country: US (occurrence: US)
  Receive Date: 20180410
  Receipt Date: 20181008
  Transmission Date: 20190204
  Serious: Yes (Death, Other)
  Sender: FDA-Public Use
  Company Number: US-TAKEDA-2018TUS009183

PATIENT
  Age: 64 Year
  Sex: Female

DRUGS (2)
  1. PONATINIB [Suspect]
     Active Substance: PONATINIB
     Indication: ACUTE LYMPHOCYTIC LEUKAEMIA
     Dosage: 30 MG, QD
     Route: 048
     Dates: start: 20170324
  2. PONATINIB [Suspect]
     Active Substance: PONATINIB
     Dosage: 15 MG, QD
     Route: 048

REACTIONS (11)
  - Pyrexia [Unknown]
  - Neoplasm progression [Unknown]
  - Slow speech [Unknown]
  - Death [Fatal]
  - Diplopia [Unknown]
  - Anxiety [Unknown]
  - Pleuritic pain [Unknown]
  - Confusional state [Unknown]
  - Dysarthria [Unknown]
  - Dyspepsia [Unknown]
  - Neuropathy peripheral [Unknown]

NARRATIVE: CASE EVENT DATE: 20180821
